FAERS Safety Report 23597428 (Version 1)
Quarter: 2024Q1

REPORT INFORMATION
  Report Type: Spontaneous
  Country: US (occurrence: US)
  Receive Date: 20240305
  Receipt Date: 20240305
  Transmission Date: 20240410
  Serious: No
  Sender: FDA-Public Use
  Company Number: US-SA-SAC20230302001565

PATIENT
  Age: 12 Year
  Sex: Male
  Weight: 38 kg

DRUGS (9)
  1. DUPIXENT [Suspect]
     Active Substance: DUPILUMAB
     Indication: Dermatitis atopic
     Dosage: 400 MG, 1X
     Route: 058
     Dates: start: 20230228, end: 20230228
  2. DUPIXENT [Suspect]
     Active Substance: DUPILUMAB
     Indication: Illness
     Dosage: 200 MG, QOW
     Route: 058
     Dates: start: 20230228
  3. OMEPRAZOLE [Concomitant]
     Active Substance: OMEPRAZOLE
  4. PIMECROLIMUS [Concomitant]
     Active Substance: PIMECROLIMUS
  5. TRIAMCINOLONE ACETONIDE [Concomitant]
     Active Substance: TRIAMCINOLONE ACETONIDE
  6. CARAFATE [Concomitant]
     Active Substance: SUCRALFATE
  7. HYDROXYZINE HYDROCHLORIDE [Concomitant]
     Active Substance: HYDROXYZINE HYDROCHLORIDE
  8. ALBUTEROL SULFATE [Concomitant]
     Active Substance: ALBUTEROL SULFATE
  9. VITAMINS [Concomitant]
     Active Substance: VITAMINS

REACTIONS (3)
  - Eczema [Unknown]
  - Rash [Unknown]
  - Product prescribing issue [Unknown]
